FAERS Safety Report 4375089-9 (Version None)
Quarter: 2004Q2

REPORT INFORMATION
  Report Type: 
  Country: None (occurrence: None)
  Receive Date: 20040603
  Receipt Date: 20040524
  Transmission Date: 20050107
  Serious: Yes (Other)
  Sender: FDA-Public Use
  Company Number: JP-JNJFOC-20040403231

PATIENT
  Age: 67 Year
  Sex: Male

DRUGS (4)
  1. ITRACONAZOLE [Suspect]
     Indication: ONYCHOMYCOSIS
     Dosage: 100 MG, 1 IN 1 DAY, ORAL
     Route: 048
     Dates: start: 20030727, end: 20040409
  2. WARFARIN SODIUM [Concomitant]
  3. AMLODIPINE BESYLATE [Concomitant]
  4. ALLOPURINOL [Concomitant]

REACTIONS (2)
  - DEAFNESS NEUROSENSORY [None]
  - DEAFNESS UNILATERAL [None]
